FAERS Safety Report 10251567 (Version 2)
Quarter: 2014Q2

REPORT INFORMATION
  Report Type: Report from Study
  Country: US (occurrence: US)
  Receive Date: 20140623
  Receipt Date: 20140630
  Transmission Date: 20141212
  Serious: Yes (Other)
  Sender: FDA-Public Use
  Company Number: US-JNJFOC-20140610919

PATIENT
  Age: 42 Year
  Sex: Female
  Weight: 92.14 kg

DRUGS (2)
  1. REMICADE [Suspect]
     Indication: PRODUCT USED FOR UNKNOWN INDICATION
     Dosage: ONCE EVERY 6-8 WEEKS
     Route: 042
  2. OMEPRAZOLE [Concomitant]
     Indication: GASTROOESOPHAGEAL REFLUX DISEASE
     Route: 065

REACTIONS (5)
  - Polyarthritis [Unknown]
  - Uterine leiomyoma [Unknown]
  - Cutaneous sarcoidosis [Unknown]
  - Bursitis [Unknown]
  - Therapeutic response decreased [Unknown]
